FAERS Safety Report 19673424 (Version 1)
Quarter: 2021Q3

REPORT INFORMATION
  Report Type: Spontaneous
  Country: US (occurrence: US)
  Receive Date: 20210806
  Receipt Date: 20210806
  Transmission Date: 20211014
  Serious: Yes (Other)
  Sender: FDA-Public Use
  Company Number: None

PATIENT
  Age: 40 Year
  Sex: Female
  Weight: 100.7 kg

DRUGS (16)
  1. AMPHETAMINE?DEXTROAMPHETAMINE [Concomitant]
     Active Substance: AMPHETAMINE SULFATE\DEXTROAMPHETAMINE
  2. SODIUM CHLORIDE 0.9% [Concomitant]
     Active Substance: SODIUM CHLORIDE
  3. PREDNISONE. [Concomitant]
     Active Substance: PREDNISONE
  4. REGEN?COV [Suspect]
     Active Substance: CASIRIVIMAB\IMDEVIMAB
     Indication: COVID-19 PNEUMONIA
     Dosage: ?          OTHER DOSE:600/600 MG;OTHER FREQUENCY:180 ML/HR X1;?
     Route: 042
     Dates: start: 20210801, end: 20210801
  5. DIVALPROEX [Concomitant]
     Active Substance: DIVALPROEX SODIUM
  6. DOXYLAMINE [Concomitant]
     Active Substance: DOXYLAMINE
  7. LORATADINE. [Concomitant]
     Active Substance: LORATADINE
  8. ACETAMINOPEHN [Concomitant]
     Active Substance: ACETAMINOPHEN
  9. ESCITALOPRAM [Concomitant]
     Active Substance: ESCITALOPRAM OXALATE
  10. GUAIFENESIN?CODEINE [Concomitant]
  11. CYCLOBENZAPRINE. [Concomitant]
     Active Substance: CYCLOBENZAPRINE
  12. PYRIDOXINE [Concomitant]
     Active Substance: PYRIDOXINE
  13. ALBUTEROL. [Concomitant]
     Active Substance: ALBUTEROL
  14. LACTATED RINGERS SOLUTION [Concomitant]
     Active Substance: CALCIUM CHLORIDE\POTASSIUM CHLORIDE\SODIUM CHLORIDE\SODIUM LACTATE
  15. DIPHENHYDRAMINE. [Concomitant]
     Active Substance: DIPHENHYDRAMINE
  16. FLUTICASONE PROPIONATE INHALER [Concomitant]
     Active Substance: FLUTICASONE PROPIONATE

REACTIONS (8)
  - Chills [None]
  - Cough [None]
  - Foetal exposure during pregnancy [None]
  - Respiratory distress [None]
  - Dyspnoea [None]
  - Foetal arrhythmia [None]
  - Hypoxia [None]
  - Maternal exposure during pregnancy [None]

NARRATIVE: CASE EVENT DATE: 20210801
